FAERS Safety Report 18166983 (Version 1)
Quarter: 2020Q3

REPORT INFORMATION
  Report Type: Spontaneous
  Country: US (occurrence: US)
  Receive Date: 20200819
  Receipt Date: 20200819
  Transmission Date: 20201103
  Serious: No
  Sender: FDA-Public Use
  Company Number: US-SA-2020SA211006

PATIENT

DRUGS (2)
  1. DUPIXENT [Suspect]
     Active Substance: DUPILUMAB
     Dosage: 300 MG, QOW
     Dates: start: 202007
  2. DUPIXENT [Suspect]
     Active Substance: DUPILUMAB
     Indication: ECZEMA
     Dosage: UNK, FIRST INJECTION
     Route: 065
     Dates: start: 202007, end: 202007

REACTIONS (3)
  - Abscess [Recovering/Resolving]
  - Product dose omission issue [Unknown]
  - Skin reaction [Recovering/Resolving]

NARRATIVE: CASE EVENT DATE: 2020
